FAERS Safety Report 9180933 (Version 2)
Quarter: 2013Q1

REPORT INFORMATION
  Report Type: Spontaneous
  Country: BR (occurrence: BR)
  Receive Date: 20130322
  Receipt Date: 20130325
  Transmission Date: 20140127
  Serious: Yes (Other)
  Sender: FDA-Public Use
  Company Number: PHHY2013BR027766

PATIENT
  Sex: Male

DRUGS (3)
  1. TEGRETOL CR [Suspect]
     Indication: TRIGEMINAL NEURALGIA
     Dosage: 400 MG, UNK
     Dates: start: 2005
  2. TEGRETOL CR [Suspect]
     Dosage: 200 MG, UNK
  3. DIOVAN HCT [Suspect]

REACTIONS (2)
  - Trigeminal neuralgia [Recovered/Resolved]
  - Pain [Recovered/Resolved]
